FAERS Safety Report 14224039 (Version 1)
Quarter: 2017Q4

REPORT INFORMATION
  Report Type: Spontaneous
  Country: US (occurrence: US)
  Receive Date: 20171123
  Receipt Date: 20171123
  Transmission Date: 20180321
  Serious: Yes (Other)
  Sender: FDA-Public Use
  Company Number: None

PATIENT
  Age: 47 Year
  Sex: Female
  Weight: 64 kg

DRUGS (2)
  1. TRIAMCINONE ACETONIDE OINTMENT USP 0.1 % [Suspect]
     Active Substance: TRIAMCINOLONE ACETONIDE
     Indication: ECZEMA
     Route: 061
     Dates: start: 20140409, end: 20140620
  2. LEVOXYL [Concomitant]
     Active Substance: LEVOTHYROXINE SODIUM

REACTIONS (6)
  - Steroid withdrawal syndrome [None]
  - Pruritus generalised [None]
  - Pain [None]
  - Skin exfoliation [None]
  - Eczema [None]
  - Generalised erythema [None]

NARRATIVE: CASE EVENT DATE: 20140325
